FAERS Safety Report 7238450-0 (Version None)
Quarter: 2011Q1

REPORT INFORMATION
  Report Type: 
  Country: None (occurrence: None)
  Receive Date: 20110121
  Receipt Date: 20110113
  Transmission Date: 20110831
  Serious: Yes (Other)
  Sender: FDA-Public Use
  Company Number: IT-JNJFOC-20110104367

PATIENT
  Sex: Female

DRUGS (6)
  1. NICARDIPINE HYDROCHLORIDE [Concomitant]
     Route: 065
  2. TELMISARTAN [Concomitant]
     Route: 048
  3. MEMANTINE HCL [Concomitant]
     Route: 048
  4. TAPAZOLE [Concomitant]
     Route: 048
  5. SERENASE [Suspect]
     Indication: ILL-DEFINED DISORDER
     Dosage: 2 MG/ 2ML
     Route: 030
  6. TALOFEN [Suspect]
     Indication: ILL-DEFINED DISORDER
     Route: 030

REACTIONS (3)
  - STUPOR [None]
  - SKIN ULCER [None]
  - SOMNOLENCE [None]
